FAERS Safety Report 4283894-2 (Version None)
Quarter: 2004Q1

REPORT INFORMATION
  Report Type: 
  Country: None (occurrence: None)
  Receive Date: 20040130
  Receipt Date: 20040121
  Transmission Date: 20041129
  Serious: No
  Sender: FDA-Public Use
  Company Number: 204306

PATIENT
  Age: 39 Year
  Sex: Female
  Weight: 56.7 kg

DRUGS (7)
  1. XOLAIR [Suspect]
     Indication: ASTHMA
     Dosage: 225 MG, Q2W, SUBCUTANEOUS
     Route: 058
     Dates: start: 20031010
  2. THEO-DUR (THEOPHYLINE) [Concomitant]
  3. FLONASE [Concomitant]
  4. PULMICORT INHALER (BUDESONIDE) [Concomitant]
  5. ALBUTEROL NEBULIZER (ALBUTEROL SULFATE, ALBUTEROL) [Concomitant]
  6. ALBUTEROL INHALER (ALBUTEROL SULFATE, ALBUTEROL) [Concomitant]
  7. KEPPRA [Concomitant]

REACTIONS (3)
  - DRUG HYPERSENSITIVITY [None]
  - DYSPNOEA PAROXYSMAL NOCTURNAL [None]
  - RESPIRATORY DISTRESS [None]
